FAERS Safety Report 11828670 (Version 1)
Quarter: 2015Q4

REPORT INFORMATION
  Report Type: Spontaneous
  Country: US (occurrence: US)
  Receive Date: 20151211
  Receipt Date: 20151211
  Transmission Date: 20160305
  Serious: No
  Sender: FDA-Public Use
  Company Number: US-JUBILANT CADISTA PHARMACEUTICALS-2015JUB00262

PATIENT
  Age: 57 Year
  Sex: Female
  Weight: 50.79 kg

DRUGS (2)
  1. UNSPECIFIED VITAMIN(S) [Concomitant]
  2. METHYLPREDNISOLONE. [Suspect]
     Active Substance: METHYLPREDNISOLONE
     Indication: BACK PAIN
     Dosage: UNK
     Route: 048
     Dates: start: 20150513, end: 201505

REACTIONS (1)
  - Abdominal distension [Not Recovered/Not Resolved]

NARRATIVE: CASE EVENT DATE: 201505
